FAERS Safety Report 7051671-5 (Version None)
Quarter: 2010Q4

REPORT INFORMATION
  Report Type: 
  Country: None (occurrence: None)
  Receive Date: 20101019
  Receipt Date: 20101008
  Transmission Date: 20110411
  Serious: Yes (Death, Hospitalization)
  Sender: FDA-Public Use
  Company Number: DE-ROCHE-733863

PATIENT
  Sex: Male
  Weight: 93 kg

DRUGS (3)
  1. TRASTUZUMAB [Suspect]
     Route: 042
     Dates: start: 20101006
  2. CISPLATIN [Suspect]
     Route: 042
     Dates: start: 20101006
  3. FLUOROURACIL [Suspect]
     Route: 042
     Dates: start: 20101006

REACTIONS (4)
  - BLOOD CREATININE INCREASED [None]
  - DEATH [None]
  - ILL-DEFINED DISORDER [None]
  - TRANSAMINASES INCREASED [None]
